FAERS Safety Report 19754649 (Version 1)
Quarter: 2021Q3

REPORT INFORMATION
  Report Type: Spontaneous
  Country: US (occurrence: US)
  Receive Date: 20210824
  Receipt Date: 20210824
  Transmission Date: 20211014
  Serious: Yes (Death)
  Sender: FDA-Public Use
  Company Number: None

PATIENT
  Sex: Male

DRUGS (1)
  1. OCTREOTIDE 1 ML SDV 100MCG/ML APP/FRESENIUS KABI [Suspect]
     Active Substance: OCTREOTIDE
     Indication: ACROMEGALY
     Dosage: ?          OTHER STRENGTH:100 UG/ML;?
     Route: 058
     Dates: start: 20210614, end: 20210810

REACTIONS (1)
  - Death [None]
